FAERS Safety Report 11059457 (Version 1)
Quarter: 2015Q2

REPORT INFORMATION
  Report Type: Spontaneous
  Country: US (occurrence: None)
  Receive Date: 20150420
  Receipt Date: 20150420
  Transmission Date: 20150821
  Serious: No
  Sender: FDA-Public Use
  Company Number: AEGR001190

PATIENT
  Age: 55 Year
  Sex: Male
  Weight: 78.9 kg

DRUGS (7)
  1. JUXTAPID [Suspect]
     Active Substance: LOMITAPIDE MESYLATE
     Indication: TYPE IIA HYPERLIPIDAEMIA
     Route: 048
     Dates: start: 20150129
  2. ZETIA [Concomitant]
     Active Substance: EZETIMIBE
  3. LOVAZA [Concomitant]
     Active Substance: OMEGA-3-ACID ETHYL ESTERS
  4. NIACIN (NICOTINIC ACID) [Concomitant]
  5. BAS [Concomitant]
  6. ATORVASTATIN (ATORVASTATIN CALCIUM) [Concomitant]
  7. FIBRATES [Concomitant]
     Active Substance: UNSPECIFIED INGREDIENT

REACTIONS (1)
  - Diarrhoea [None]

NARRATIVE: CASE EVENT DATE: 20150210
